FAERS Safety Report 5822577-1 (Version None)
Quarter: 2008Q3

REPORT INFORMATION
  Report Type: 
  Country: None (occurrence: None)
  Receive Date: 20080725
  Receipt Date: 20080717
  Transmission Date: 20090109
  Serious: Yes (Hospitalization)
  Sender: FDA-Public Use
  Company Number: FR-JNJFOC-20080704225

PATIENT
  Age: 38 Year
  Sex: Male

DRUGS (9)
  1. RISPERDAL CONSTA [Suspect]
     Indication: DRUG USE FOR UNKNOWN INDICATION
     Route: 030
  2. ABILIFY [Suspect]
     Indication: DRUG USE FOR UNKNOWN INDICATION
     Dosage: ARIPIPRAZOLE WAS GIVEN FOR AN UNKNOWN INDICATION AND UNKNOWN DOSAGE.
     Route: 048
  3. LEPTICUR [Concomitant]
     Route: 065
  4. CLONAZEPAM [Concomitant]
     Route: 065
  5. TERCIAN [Concomitant]
     Route: 065
  6. TERCIAN [Concomitant]
     Route: 065
  7. TERCIAN [Concomitant]
     Route: 065
  8. DEPAKOTE [Concomitant]
     Dates: end: 20080417
  9. DEPAKOTE [Concomitant]
     Dates: end: 20080417

REACTIONS (1)
  - RHABDOMYOLYSIS [None]
